FAERS Safety Report 9195095 (Version 1)
Quarter: 2013Q1

REPORT INFORMATION
  Report Type: Spontaneous
  Country: US (occurrence: US)
  Receive Date: 20130328
  Receipt Date: 20130328
  Transmission Date: 20140127
  Serious: No
  Sender: FDA-Public Use
  Company Number: US-ALLERGAN-1203947US

PATIENT
  Age: 67 Year
  Sex: Female

DRUGS (1)
  1. LUMIGAN [Suspect]
     Indication: PRODUCT USED FOR UNKNOWN INDICATION
     Route: 047

REACTIONS (6)
  - Nasal congestion [Unknown]
  - Conjunctivitis [Unknown]
  - Eye swelling [Unknown]
  - Erythema [Unknown]
  - Ocular hyperaemia [Unknown]
  - Lacrimation increased [Unknown]
